FAERS Safety Report 4732075-4 (Version None)
Quarter: 2005Q3

REPORT INFORMATION
  Report Type: 
  Country: None (occurrence: None)
  Receive Date: 20050722
  Receipt Date: 20040813
  Transmission Date: 20060218
  Serious: Yes (Hospitalization)
  Sender: FDA-Public Use
  Company Number: 04P-163-0270753-00

PATIENT
  Sex: Male

DRUGS (2)
  1. NORVIR [Suspect]
  2. ATAZANAVIR [Suspect]

REACTIONS (1)
  - HEPATIC ENZYME INCREASED [None]
